FAERS Safety Report 6608870-3 (Version None)
Quarter: 2010Q1

REPORT INFORMATION
  Report Type: 
  Country: None (occurrence: None)
  Receive Date: 20100301
  Receipt Date: 20100215
  Transmission Date: 20100710
  Serious: Yes (Other)
  Sender: FDA-Public Use
  Company Number: FR-MYLANLABS-2010S1002351

PATIENT
  Age: 34 Year
  Sex: Male

DRUGS (4)
  1. ETOPOSIDE [Suspect]
     Indication: SEMINOMA
     Dosage: 100 MG/M2/DAY FOR 5 DAYS; 3 CYCLES
  2. CISPLATIN [Suspect]
     Indication: SEMINOMA
     Dosage: 20 MG/M2/DAY FOR 5 DAYS; 3 CYCLES
  3. BLEOMYCIN SULFATE [Suspect]
     Indication: SEMINOMA
     Dosage: 30 MG/DAY, DAYS 1, 8 AND 15; 3 CYCLES
  4. PREDNISOLONE [Suspect]

REACTIONS (1)
  - ARTERIAL THROMBOSIS LIMB [None]
